FAERS Safety Report 24583999 (Version 1)
Quarter: 2024Q4

REPORT INFORMATION
  Report Type: Spontaneous
  Country: TZ (occurrence: TZ)
  Receive Date: 20241106
  Receipt Date: 20241106
  Transmission Date: 20250114
  Serious: Yes (Death)
  Sender: PFIZER
  Company Number: TZ-PFIZER INC-PV202400142200

PATIENT
  Age: 62 Year
  Sex: Male

DRUGS (2)
  1. CLINDAMYCIN PHOSPHATE [Suspect]
     Active Substance: CLINDAMYCIN PHOSPHATE
     Indication: Pneumonia staphylococcal
     Dosage: 600 MG, 4X/DAY
     Route: 042
  2. PIPERACILLIN AND TAZOBACTAM [Suspect]
     Active Substance: PIPERACILLIN SODIUM\TAZOBACTAM SODIUM
     Indication: Acute respiratory distress syndrome
     Dosage: 4.5 G, 3X/DAY
     Route: 042

REACTIONS (1)
  - Treatment failure [Fatal]
